FAERS Safety Report 9282097 (Version 1)
Quarter: 2013Q2

REPORT INFORMATION
  Report Type: Spontaneous
  Country: US (occurrence: None)
  Receive Date: 20130508
  Receipt Date: 20130508
  Transmission Date: 20140414
  Serious: Yes (Other)
  Sender: FDA-Public Use
  Company Number: None

PATIENT
  Age: 22 Year
  Sex: Male
  Weight: 61.9 kg

DRUGS (12)
  1. WARFARIN [Suspect]
     Indication: DEEP VEIN THROMBOSIS
     Dosage: (VARIED) QD PO
     Route: 048
     Dates: start: 20110321, end: 20110327
  2. PIPERACILLIN/ TAZOBACTAM [Concomitant]
  3. SULFAMETHOXAZOLE/TRIMETHOPRIM [Concomitant]
  4. DIPHENHYDRAMINE [Concomitant]
  5. DOCUSATE [Concomitant]
  6. FUROSEMIDE [Concomitant]
  7. HYDROMORPHONE [Concomitant]
  8. LANSOPRAZOLE [Concomitant]
  9. ONDASETRON [Concomitant]
  10. SEVELAMER [Concomitant]
  11. VANCOMYCIN [Concomitant]
  12. SODIUM POLYSTYRENE SULFATE [Concomitant]

REACTIONS (2)
  - Catheter site haemorrhage [None]
  - International normalised ratio increased [None]
